FAERS Safety Report 8894236 (Version 1)
Quarter: 2012Q4

REPORT INFORMATION
  Report Type: 
  Country: DE (occurrence: DE)
  Receive Date: 20121108
  Receipt Date: 20121108
  Transmission Date: 20130627
  Serious: Yes (Other)
  Sender: FDA-Public Use
  Company Number: DE-TEVA-367318GER

PATIENT
  Age: 91 Year
  Sex: Female

DRUGS (3)
  1. RISPERIDON [Suspect]
     Indication: DEMENTIA
     Dosage: 10 Milligram Daily;
     Route: 048
     Dates: start: 201209
  2. RAMIPRIL [Concomitant]
     Indication: HYPERTENSION
  3. HYDROCHLOROTHIAZIDE [Concomitant]
     Indication: HYPERTENSION

REACTIONS (1)
  - Thrombophlebitis [Unknown]
